FAERS Safety Report 5952370-0 (Version None)
Quarter: 2008Q4

REPORT INFORMATION
  Report Type: 
  Country: None (occurrence: None)
  Receive Date: 20081113
  Receipt Date: 20081102
  Transmission Date: 20090506
  Serious: Yes (Disabling)
  Sender: FDA-Public Use
  Company Number: US-BAUSCH-2008BL004690

PATIENT
  Age: 22 Year
  Sex: Male

DRUGS (13)
  1. CIPROFLOXACIN [Suspect]
     Indication: CYSTIC FIBROSIS LUNG
     Route: 048
  2. TOBRAMYCIN [Suspect]
     Indication: CYSTIC FIBROSIS LUNG
     Route: 049
  3. TOBRAMYCIN [Suspect]
     Route: 042
  4. PIPERACILLIN SODIUM AND TAZOBACTAM SODIUM [Suspect]
     Indication: CYSTIC FIBROSIS LUNG
     Route: 042
  5. VANCOMYCIN [Suspect]
     Indication: PNEUMONIA STAPHYLOCOCCAL
     Route: 042
  6. ULTRASE MT /USA/ [Concomitant]
     Indication: PANCREATIC INSUFFICIENCY
     Route: 048
  7. ADEK-FALK [Concomitant]
     Indication: VITAMIN SUPPLEMENTATION
     Route: 048
  8. ALBUTEROL [Concomitant]
     Indication: CYSTIC FIBROSIS
     Route: 049
  9. PULMOZYME [Concomitant]
     Indication: CYSTIC FIBROSIS
     Route: 049
  10. IBUPROFEN TABLETS [Concomitant]
     Indication: PAIN
     Route: 048
  11. CYCLOBENZAPRINE HCL [Concomitant]
     Indication: PAIN
     Route: 048
  12. IPRATROPIUM BROMIDE [Concomitant]
     Indication: CYSTIC FIBROSIS
     Route: 049
  13. COLISTIMETHATE SODIUM [Concomitant]
     Indication: CYSTIC FIBROSIS
     Route: 049

REACTIONS (5)
  - CONDITION AGGRAVATED [None]
  - CYSTIC FIBROSIS LUNG [None]
  - DRUG INEFFECTIVE [None]
  - METHICILLIN-RESISTANT STAPHYLOCOCCAL AUREUS TEST POSITIVE [None]
  - NEURALGIC AMYOTROPHY [None]
